FAERS Safety Report 8852882 (Version 1)
Quarter: 2012Q4

REPORT INFORMATION
  Report Type: 
  Country: US (occurrence: US)
  Receive Date: 20121022
  Receipt Date: 20121022
  Transmission Date: 20130627
  Serious: Yes (Death)
  Sender: FDA-Public Use
  Company Number: US-PFIZER INC-2012262349

PATIENT
  Age: 50 Year
  Sex: Male

DRUGS (1)
  1. RAPAMUNE [Suspect]
     Indication: PANCREAS TRANSPLANT
     Dosage: UNK, 1x/day
     Route: 048

REACTIONS (2)
  - Cardiac disorder [Fatal]
  - Off label use [Unknown]
